FAERS Safety Report 9394319 (Version 1)
Quarter: 2013Q3

REPORT INFORMATION
  Report Type: Spontaneous
  Country: DE (occurrence: DE)
  Receive Date: 20130711
  Receipt Date: 20130711
  Transmission Date: 20140515
  Serious: Yes (Hospitalization)
  Sender: FDA-Public Use
  Company Number: DE-AMGEN-DEUSP2013038551

PATIENT
  Age: 100 Year
  Sex: Female
  Weight: 55 kg

DRUGS (6)
  1. PROLIA [Suspect]
     Indication: OSTEOPOROSIS POSTMENOPAUSAL
     Dosage: UNK
     Dates: start: 201105
  2. BISOPROLOL [Concomitant]
     Dosage: 2.5 MG, QD
     Route: 048
  3. PANTOPRAZOL [Concomitant]
  4. GODAMED [Concomitant]
     Dosage: 100 MG, UNK
  5. MAGNESIUM [Concomitant]
     Dosage: 300 MG, QD
  6. DEKRISTOL NEU [Concomitant]
     Dosage: 20000 UNK, Q2WK

REACTIONS (13)
  - Eye operation [Unknown]
  - Scab [Unknown]
  - Ear infection [Unknown]
  - Laryngeal inflammation [Unknown]
  - Sensation of foreign body [Unknown]
  - Dry throat [Unknown]
  - Dyspnoea [Unknown]
  - Headache [Unknown]
  - Gait disturbance [Unknown]
  - Arthralgia [Unknown]
  - Pruritus [Unknown]
  - Infection [Not Recovered/Not Resolved]
  - Pain in extremity [Unknown]
